FAERS Safety Report 8584561-7 (Version None)
Quarter: 2012Q3

REPORT INFORMATION
  Report Type: 
  Country: None (occurrence: None)
  Receive Date: 20120810
  Receipt Date: 20120427
  Transmission Date: 20120928
  Serious: No
  Sender: FDA-Public Use
  Company Number: US-009507513-2012SP027826

PATIENT

DRUGS (2)
  1. CLARITIN-D 24 HOUR [Suspect]
     Indication: RHINORRHOEA
     Dosage: 5 MG, QPM
     Route: 048
     Dates: start: 20120402
  2. CLARITIN-D 24 HOUR [Suspect]
     Indication: MEDICAL OBSERVATION
     Dosage: 5 MG, QPM
     Route: 048
     Dates: start: 20120402

REACTIONS (2)
  - DRUG INEFFECTIVE [None]
  - INAPPROPRIATE SCHEDULE OF DRUG ADMINISTRATION [None]
